FAERS Safety Report 10945653 (Version 4)
Quarter: 2015Q2

REPORT INFORMATION
  Report Type: Spontaneous
  Country: US (occurrence: US)
  Receive Date: 20150323
  Receipt Date: 20150507
  Transmission Date: 20150821
  Serious: Yes (Life-Threatening, Other)
  Sender: FDA-Public Use
  Company Number: US-009507513-1503USA008681

PATIENT
  Sex: Female
  Weight: 55.33 kg

DRUGS (7)
  1. VALIUM [Concomitant]
     Active Substance: DIAZEPAM
  2. BELSOMRA [Suspect]
     Active Substance: SUVOREXANT
     Indication: INSOMNIA
     Dosage: 2 DF, HS
     Route: 048
     Dates: start: 20150309, end: 201503
  3. BELSOMRA [Suspect]
     Active Substance: SUVOREXANT
     Dosage: 10 MG, HS
     Route: 048
     Dates: start: 20150226, end: 20150308
  4. AMBIEN [Concomitant]
     Active Substance: ZOLPIDEM TARTRATE
     Dosage: 10 MG, HS
     Route: 048
     Dates: end: 20150223
  5. LYRICA [Concomitant]
     Active Substance: PREGABALIN
     Dosage: 75MG CAPSULE ONCE DAILY
     Route: 048
     Dates: start: 2013
  6. SYNTHROID [Concomitant]
     Active Substance: LEVOTHYROXINE SODIUM
     Indication: HYPOTHYROIDISM
     Dosage: 50MG ONCE DAILY
     Route: 048
     Dates: start: 2011
  7. METOPROLOL [Concomitant]
     Active Substance: METOPROLOL
     Indication: HYPOTHYROIDISM
     Dosage: 3.125 MG ONCE DAILY
     Route: 048
     Dates: start: 2011

REACTIONS (6)
  - Seizure [Recovered/Resolved]
  - Abasia [Recovered/Resolved]
  - Blood pressure increased [Unknown]
  - Speech disorder [Recovered/Resolved]
  - Asthenia [Recovered/Resolved]
  - Tunnel vision [Recovered/Resolved]

NARRATIVE: CASE EVENT DATE: 2015
